FAERS Safety Report 10071566 (Version 2)
Quarter: 2014Q2

REPORT INFORMATION
  Report Type: Spontaneous
  Country: US (occurrence: US)
  Receive Date: 20140410
  Receipt Date: 20140410
  Transmission Date: 20141212
  Serious: Yes (Hospitalization)
  Sender: FDA-Public Use
  Company Number: US-US-EMD SERONO, INC.-237104K07USA

PATIENT
  Age: 43 Year
  Sex: Female

DRUGS (14)
  1. REBIF [Suspect]
     Indication: MULTIPLE SCLEROSIS
     Route: 058
     Dates: start: 200303, end: 200701
  2. REBIF [Suspect]
     Route: 058
     Dates: start: 200703
  3. DETROL LA [Concomitant]
  4. GABAPENTIN [Concomitant]
  5. BACLOFEN [Concomitant]
  6. TIZANIDINE [Concomitant]
  7. PROVIGIL [Concomitant]
  8. ASPIRIN [Concomitant]
  9. LIPITOR [Concomitant]
  10. DOCUSATE [Concomitant]
  11. NEXIUM [Concomitant]
  12. METOPROLOL [Concomitant]
  13. NIFEDIPINE [Concomitant]
  14. MIRALAX [Concomitant]

REACTIONS (6)
  - Hypertensive crisis [Recovered/Resolved]
  - Lung disorder [Recovered/Resolved]
  - Renal failure acute [Recovered/Resolved]
  - Thrombotic microangiopathy [Recovered/Resolved]
  - Kidney infection [Recovered/Resolved]
  - Multiple sclerosis relapse [Recovered/Resolved]
